FAERS Safety Report 6848288-1 (Version None)
Quarter: 2010Q3

REPORT INFORMATION
  Report Type: 
  Country: None (occurrence: None)
  Receive Date: 20100716
  Receipt Date: 20100707
  Transmission Date: 20110219
  Serious: Yes (Other)
  Sender: FDA-Public Use
  Company Number: US-JNJFOC-20100406908

PATIENT
  Sex: Female

DRUGS (4)
  1. REMICADE [Suspect]
     Indication: COLITIS ULCERATIVE
     Dosage: TOTAL OF 3 DOSES ADMINISTERED
     Route: 042
  2. BENTYL [Concomitant]
  3. CANASA [Concomitant]
  4. COLAZAL [Concomitant]

REACTIONS (6)
  - ABDOMINAL PAIN [None]
  - DEFAECATION URGENCY [None]
  - DIARRHOEA [None]
  - DRUG INEFFECTIVE [None]
  - NAUSEA [None]
  - SERUM SICKNESS-LIKE REACTION [None]
